FAERS Safety Report 6887155-4 (Version None)
Quarter: 2010Q3

REPORT INFORMATION
  Report Type: 
  Country: None (occurrence: None)
  Receive Date: 20100730
  Receipt Date: 20100630
  Transmission Date: 20110219
  Serious: Yes (Other)
  Sender: FDA-Public Use
  Company Number: US-JNJFOC-20100701028

PATIENT
  Sex: Female
  Weight: 72.58 kg

DRUGS (2)
  1. ULTRAM ER [Suspect]
     Indication: PAIN
     Route: 048
  2. NEXIUM [Concomitant]
     Indication: GASTROOESOPHAGEAL REFLUX DISEASE

REACTIONS (9)
  - ASTHENIA [None]
  - COUGH [None]
  - FEELING ABNORMAL [None]
  - HEADACHE [None]
  - HYPERHIDROSIS [None]
  - INSOMNIA [None]
  - NAUSEA [None]
  - SNEEZING [None]
  - SUICIDAL IDEATION [None]
